FAERS Safety Report 4621465-6 (Version None)
Quarter: 2005Q2

REPORT INFORMATION
  Report Type: 
  Country: None (occurrence: None)
  Receive Date: 20050317
  Receipt Date: 20040129
  Transmission Date: 20051028
  Serious: Yes (Hospitalization, Other)
  Sender: FDA-Public Use
  Company Number: PHEH2004US01389

PATIENT
  Age: 40 Year
  Sex: Female
  Weight: 81.6 kg

DRUGS (2)
  1. TRILEPTAL [Suspect]
     Indication: SCHIZOAFFECTIVE DISORDER
     Dosage: 600 MG BID ORAL
     Route: 048
     Dates: start: 20031201, end: 20040130
  2. RISPERDAL [Concomitant]

REACTIONS (4)
  - AGGRESSION [None]
  - BLOOD CHLORIDE DECREASED [None]
  - CONVULSION [None]
  - HYPONATRAEMIA [None]
